FAERS Safety Report 4274119-2 (Version None)
Quarter: 2004Q1

REPORT INFORMATION
  Report Type: 
  Country: None (occurrence: None)
  Receive Date: 20040120
  Receipt Date: 20040114
  Transmission Date: 20041129
  Serious: Yes (Hospitalization)
  Sender: FDA-Public Use
  Company Number: JP-GLAXOSMITHKLINE-B0319955A

PATIENT
  Age: 65 Year
  Sex: Male

DRUGS (3)
  1. ESKAZOLE [Suspect]
     Indication: ASCARIASIS
     Dosage: 600MG PER DAY
     Route: 048
     Dates: start: 20031201, end: 20031223
  2. SENNOSIDE [Concomitant]
     Route: 048
  3. FAMOTIDINE [Concomitant]
     Route: 065

REACTIONS (3)
  - ALOPECIA [None]
  - INFECTION [None]
  - PANCYTOPENIA [None]
